FAERS Safety Report 12394579 (Version 1)
Quarter: 2016Q2

REPORT INFORMATION
  Report Type: Report from Study
  Country: CA (occurrence: CA)
  Receive Date: 20160523
  Receipt Date: 20160523
  Transmission Date: 20160815
  Serious: Yes (Death, Hospitalization)
  Sender: FDA-Public Use
  Company Number: PHHY2015CA119817

PATIENT
  Age: 81 Year
  Sex: Male

DRUGS (2)
  1. SANDOSTATIN LAR DEPOT [Suspect]
     Active Substance: OCTREOTIDE ACETATE
     Indication: GASTROINTESTINAL HYPOMOTILITY
     Dosage: 20 MG, QMO (EVERY 4 WEEKS)
     Route: 030
     Dates: start: 20150930
  2. SANDOSTATIN [Suspect]
     Active Substance: OCTREOTIDE ACETATE
     Indication: GASTROINTESTINAL HYPOMOTILITY
     Dosage: 100 UG, TID
     Route: 058
     Dates: start: 201508

REACTIONS (5)
  - Product use issue [Unknown]
  - Intestinal obstruction [Unknown]
  - Death [Fatal]
  - Asthenia [Unknown]
  - Pallor [Unknown]

NARRATIVE: CASE EVENT DATE: 20160503
